FAERS Safety Report 14600106 (Version 5)
Quarter: 2018Q2

REPORT INFORMATION
  Report Type: Report from Study
  Country: US (occurrence: US)
  Receive Date: 20180305
  Receipt Date: 20180605
  Transmission Date: 20180711
  Serious: Yes (Death)
  Sender: FDA-Public Use
  Company Number: US-ASTRAZENECA-2018SE27380

PATIENT
  Age: 13835 Day
  Sex: Female
  Weight: 53.8 kg

DRUGS (17)
  1. COMPAZINE [Concomitant]
     Active Substance: PROCHLORPERAZINE MALEATE
     Route: 065
  2. ADXS11-001 [Suspect]
     Active Substance: INVESTIGATIONAL PRODUCT
     Indication: CERVIX CARCINOMA
     Dosage: 1 X 10^9 CFU
     Route: 042
     Dates: start: 20170519, end: 20180226
  3. LACTAID [Concomitant]
     Active Substance: LACTASE
     Route: 065
     Dates: start: 20170911
  4. CALCIUM + D DUETTO [Suspect]
     Active Substance: CALCIUM\CHOLECALCIFEROL
     Dosage: NIGHTLY
     Route: 048
  5. CLARITIN [Concomitant]
     Active Substance: LORATADINE
     Route: 065
     Dates: start: 20170415
  6. IBUPROFEN. [Concomitant]
     Active Substance: IBUPROFEN
     Route: 065
  7. ZOFRAN [Concomitant]
     Active Substance: ONDANSETRON HYDROCHLORIDE
     Route: 065
  8. MEDI4736 [Suspect]
     Active Substance: DURVALUMAB
     Indication: CERVIX CARCINOMA
     Dosage: 540.0MG UNKNOWN
     Route: 042
     Dates: start: 20170519, end: 20180226
  9. AMPICILLIN [Concomitant]
     Active Substance: AMPICILLIN
     Route: 065
  10. MEDI4736 [Suspect]
     Active Substance: DURVALUMAB
     Indication: PAPILLOMA VIRAL INFECTION
     Dosage: 540.0MG UNKNOWN
     Route: 042
     Dates: start: 20170519, end: 20180226
  11. FLAXSEED [Concomitant]
     Active Substance: FLAX SEED
     Route: 065
     Dates: start: 2016
  12. MULTIVITAMIN [Concomitant]
     Active Substance: VITAMINS
     Route: 065
  13. ADXS11-001 [Suspect]
     Active Substance: INVESTIGATIONAL PRODUCT
     Indication: PAPILLOMA VIRAL INFECTION
     Dosage: 1 X 10^9 CFU
     Route: 042
     Dates: start: 20170519, end: 20180226
  14. PYRIDOXINE HYDROCHLORIDE. [Concomitant]
     Active Substance: PYRIDOXINE HYDROCHLORIDE
     Route: 065
     Dates: start: 201605
  15. CALCIUM [Concomitant]
     Active Substance: CALCIUM
     Route: 065
     Dates: start: 201612
  16. HYOSCINE [Concomitant]
     Active Substance: SCOPOLAMINE
     Route: 065
     Dates: start: 20180226
  17. NEURONTIN [Concomitant]
     Active Substance: GABAPENTIN
     Route: 065
     Dates: end: 20180225

REACTIONS (1)
  - Acute respiratory failure [Fatal]

NARRATIVE: CASE EVENT DATE: 20180226
